FAERS Safety Report 6437141-3 (Version None)
Quarter: 2009Q4

REPORT INFORMATION
  Report Type: 
  Country: None (occurrence: None)
  Receive Date: 20091112
  Receipt Date: 20091109
  Transmission Date: 20100525
  Serious: Yes (Death)
  Sender: FDA-Public Use
  Company Number: JP-BAYER-200914304BYL

PATIENT
  Age: 67 Year
  Sex: Female

DRUGS (12)
  1. FLUDARA [Suspect]
     Indication: FOLLICLE CENTRE LYMPHOMA, FOLLICULAR GRADE I, II, III STAGE IV
     Dosage: TOTAL DAILY DOSE: 40 MG  UNIT DOSE: 10 MG
     Route: 048
     Dates: start: 20090512, end: 20090516
  2. FLUDARA [Suspect]
     Dosage: TOTAL DAILY DOSE: 40 MG  UNIT DOSE: 10 MG
     Route: 048
     Dates: start: 20080812, end: 20080816
  3. FLUDARA [Suspect]
     Indication: FOLLICLE CENTRE LYMPHOMA, FOLLICULAR GRADE I, II, III STAGE IV
     Route: 041
     Dates: start: 20090701
  4. CYCLOPHOSPHAMIDE [Concomitant]
     Indication: CORD BLOOD TRANSPLANT THERAPY
     Route: 041
     Dates: start: 20090701
  5. BEZATOL SR [Concomitant]
     Indication: HYPERLIPIDAEMIA
     Dosage: UNIT DOSE: 200 MG
     Route: 048
  6. GLAKAY [Concomitant]
     Indication: RHEUMATOID ARTHRITIS
     Route: 048
  7. BONALON [Concomitant]
     Indication: RHEUMATOID ARTHRITIS
     Route: 048
  8. VOLTAREN [Concomitant]
     Indication: RHEUMATOID ARTHRITIS
     Route: 048
  9. LANSOPRAZOLE [Concomitant]
     Indication: PROPHYLAXIS AGAINST GASTROINTESTINAL ULCER
     Route: 048
  10. BAKTAR [Concomitant]
     Indication: INFECTION PROPHYLAXIS
     Dosage: UNIT DOSE: 1 DF
     Route: 048
  11. DIFLUCAN [Concomitant]
     Indication: INFECTION PROPHYLAXIS
     Route: 048
  12. PREDNISOLONE [Concomitant]
     Indication: FOLLICLE CENTRE LYMPHOMA, FOLLICULAR GRADE I, II, III STAGE IV
     Route: 048

REACTIONS (1)
  - ACUTE GRAFT VERSUS HOST DISEASE [None]
